FAERS Safety Report 7561386-2 (Version None)
Quarter: 2011Q2

REPORT INFORMATION
  Report Type: 
  Country: None (occurrence: None)
  Receive Date: 20110621
  Receipt Date: 20100728
  Transmission Date: 20111010
  Serious: No
  Sender: FDA-Public Use
  Company Number: US-ASTRAZENECA-2010SE35300

PATIENT
  Age: 77 Year
  Sex: Female
  Weight: 127 kg

DRUGS (3)
  1. ALBUTEROL SULFATE AUTOHALER [Concomitant]
  2. SINGULAIR [Concomitant]
  3. PULMICORT FLEXHALER [Suspect]
     Indication: ASTHMA
     Dosage: 180 MCG 2 PUFFS BID
     Route: 055
     Dates: start: 20100726

REACTIONS (3)
  - DRUG INEFFECTIVE [None]
  - MUSCLE SPASMS [None]
  - FEELING ABNORMAL [None]
